FAERS Safety Report 9198635 (Version 2)
Quarter: 2013Q2

REPORT INFORMATION
  Report Type: Spontaneous
  Country: FR (occurrence: FR)
  Receive Date: 20130329
  Receipt Date: 20130516
  Transmission Date: 20140414
  Serious: Yes (Life-Threatening)
  Sender: FDA-Public Use
  Company Number: FR-JNJFOC-20130313208

PATIENT
  Age: 39 Year
  Sex: Male
  Weight: 78 kg

DRUGS (4)
  1. RISPERDAL CONSTA [Suspect]
     Indication: SCHIZOPHRENIA
     Route: 030
     Dates: start: 2008, end: 201208
  2. KEPPRA [Concomitant]
     Indication: EPILEPSY
     Route: 048
  3. DEPAKINE [Concomitant]
     Indication: EPILEPSY
     Route: 048
  4. LOXAPAC [Concomitant]
     Indication: AGITATION
     Route: 048

REACTIONS (3)
  - Myocardial infarction [Recovered/Resolved with Sequelae]
  - Prescribed overdose [Unknown]
  - Off label use [Unknown]
